FAERS Safety Report 14978878 (Version 2)
Quarter: 2018Q2

REPORT INFORMATION
  Report Type: Spontaneous
  Country: FR (occurrence: FR)
  Receive Date: 20180606
  Receipt Date: 20180629
  Transmission Date: 20180711
  Serious: Yes (Other)
  Sender: FDA-Public Use
  Company Number: FR-ELI_LILLY_AND_COMPANY-FR201804004797

PATIENT
  Sex: Male
  Weight: 1.89 kg

DRUGS (48)
  1. FUROSEMIDE. [Suspect]
     Active Substance: FUROSEMIDE
     Indication: HYPERTENSION
     Dosage: UNK UNK, UNKNOWN
     Route: 064
  2. NICOPATCH [Suspect]
     Active Substance: NICOTINE
     Indication: EX-TOBACCO USER
     Dosage: 7 MG, DAILY
     Route: 064
     Dates: start: 20170224, end: 20170516
  3. TARDYFERON [Suspect]
     Active Substance: FERROUS SULFATE
     Indication: NORMOCHROMIC NORMOCYTIC ANAEMIA
     Dosage: 1 DF, DAILY
     Route: 064
     Dates: start: 20170313
  4. GLICLAZIDE [Suspect]
     Active Substance: GLICLAZIDE
     Indication: TYPE 2 DIABETES MELLITUS
     Dosage: 120 MG, DAILY
     Route: 064
     Dates: start: 20160930, end: 20170224
  5. LANTUS [Suspect]
     Active Substance: INSULIN GLARGINE
     Indication: TYPE 2 DIABETES MELLITUS
     Dosage: 20 IU, UNKNOWN
     Route: 064
     Dates: start: 20170224
  6. LARGACTIL                          /00011901/ [Suspect]
     Active Substance: CHLORPROMAZINE
     Indication: BIPOLAR I DISORDER
     Dosage: 25 MG, DAILY
     Route: 064
     Dates: start: 20170720
  7. FORLAX [Suspect]
     Active Substance: POLYETHYLENE GLYCOL 4000
     Indication: CONSTIPATION
     Dosage: 1 DF, DAILY
     Route: 064
     Dates: start: 20160930, end: 20170405
  8. NICARDIPINE HYDROCHLORIDE. [Suspect]
     Active Substance: NICARDIPINE HYDROCHLORIDE
     Indication: HYPERTENSION
     Dosage: 50 MG, BID
     Route: 064
  9. FOLINIC ACID [Suspect]
     Active Substance: LEUCOVORIN
     Indication: PRODUCT USED FOR UNKNOWN INDICATION
     Dosage: 5 MG, DAILY
     Route: 064
     Dates: start: 20170224, end: 20170313
  10. METFORMIN [Suspect]
     Active Substance: METFORMIN HYDROCHLORIDE
     Indication: TYPE 2 DIABETES MELLITUS
     Dosage: 1700 MG, DAILY
     Route: 064
     Dates: start: 20160930, end: 20170224
  11. DIFFU-K [Suspect]
     Active Substance: POTASSIUM CHLORIDE
     Indication: HYPOKALAEMIA
     Dosage: UNK UNK, UNKNOWN
     Route: 064
     Dates: start: 20170804
  12. GABAPENTINE [Suspect]
     Active Substance: GABAPENTIN
     Indication: DIABETIC NEUROPATHY
     Dosage: 800 MG, UNKNOWN
     Route: 064
     Dates: start: 20170930
  13. FOLIC ACID. [Suspect]
     Active Substance: FOLIC ACID
     Indication: NORMOCHROMIC NORMOCYTIC ANAEMIA
     Dosage: 5 MG, DAILY
     Route: 064
     Dates: start: 20170313
  14. METHYLDOPA MSD [Suspect]
     Active Substance: METHYLDOPA
     Indication: HYPERTENSION
     Dosage: 1500 MG, DAILY
     Route: 064
     Dates: start: 20170720
  15. TRAMADOL HYDROCHLORIDE. [Suspect]
     Active Substance: TRAMADOL HYDROCHLORIDE
     Indication: DIABETIC NEUROPATHY
     Dosage: 100 MG, DAILY
     Route: 064
     Dates: start: 20160930, end: 20170306
  16. GLICLAZIDE [Suspect]
     Active Substance: GLICLAZIDE
     Indication: TYPE 2 DIABETES MELLITUS
     Dosage: 120 MG, DAILY
     Route: 064
     Dates: start: 20160930, end: 20170224
  17. HUMALOG [Suspect]
     Active Substance: INSULIN LISPRO
     Indication: TYPE 2 DIABETES MELLITUS
     Dosage: 21 UG/M2, DAILY
     Route: 064
     Dates: start: 20170224
  18. HUMALOG [Suspect]
     Active Substance: INSULIN LISPRO
     Indication: TYPE 2 DIABETES MELLITUS
     Dosage: 21 UG/M2, DAILY
     Route: 064
     Dates: start: 20170224
  19. LARGACTIL                          /00011901/ [Suspect]
     Active Substance: CHLORPROMAZINE
     Indication: BIPOLAR I DISORDER
     Dosage: 25 MG, DAILY
     Route: 064
     Dates: start: 20170720
  20. LABETALOL [Suspect]
     Active Substance: LABETALOL\LABETALOL HYDROCHLORIDE
     Indication: HYPERTENSION
     Dosage: 80 MG, DAILY
     Route: 064
     Dates: start: 20170516
  21. NICARDIPINE HYDROCHLORIDE. [Suspect]
     Active Substance: NICARDIPINE HYDROCHLORIDE
     Indication: HYPERTENSION
     Dosage: 50 MG, BID
     Route: 064
  22. FOLINIC ACID [Suspect]
     Active Substance: LEUCOVORIN
     Indication: PRODUCT USED FOR UNKNOWN INDICATION
     Dosage: 5 MG, DAILY
     Route: 064
     Dates: start: 20170224, end: 20170313
  23. TRAMADOL HYDROCHLORIDE. [Suspect]
     Active Substance: TRAMADOL HYDROCHLORIDE
     Indication: DIABETIC NEUROPATHY
     Dosage: 100 MG, DAILY
     Route: 064
     Dates: start: 20160930, end: 20170306
  24. INSULIN PORCINE [Suspect]
     Active Substance: INSULIN PORK\INSULIN PURIFIED PORK
     Indication: TYPE 2 DIABETES MELLITUS
     Dosage: UNK, UNKNOWN
     Route: 064
     Dates: start: 20160930, end: 20170224
  25. LEVEMIR [Suspect]
     Active Substance: INSULIN DETEMIR
     Indication: TYPE 2 DIABETES MELLITUS
     Dosage: 10 IU, DAILY
     Route: 064
     Dates: start: 20160930, end: 20170224
  26. LANTUS [Suspect]
     Active Substance: INSULIN GLARGINE
     Indication: TYPE 2 DIABETES MELLITUS
     Dosage: 20 IU, UNKNOWN
     Route: 064
     Dates: start: 20170224
  27. NICOPATCH [Suspect]
     Active Substance: NICOTINE
     Indication: EX-TOBACCO USER
     Dosage: 7 MG, DAILY
     Route: 064
     Dates: start: 20170224, end: 20170516
  28. TARDYFERON [Suspect]
     Active Substance: FERROUS SULFATE
     Indication: NORMOCHROMIC NORMOCYTIC ANAEMIA
     Dosage: 1 DF, DAILY
     Route: 064
     Dates: start: 20170313
  29. FORLAX [Suspect]
     Active Substance: POLYETHYLENE GLYCOL 4000
     Indication: CONSTIPATION
     Dosage: 1 DF, DAILY
     Route: 064
     Dates: start: 20160930, end: 20170405
  30. ARIPIPRAZOLE. [Suspect]
     Active Substance: ARIPIPRAZOLE
     Indication: BIPOLAR I DISORDER
     Dosage: 10 MG, DAILY
     Route: 064
     Dates: start: 20160930, end: 20170224
  31. RAMIPRIL. [Suspect]
     Active Substance: RAMIPRIL
     Indication: HYPERTENSION
     Dosage: 2.5 MG, DAILY
     Route: 064
     Dates: start: 20160930, end: 20170224
  32. LOXEN                              /00639802/ [Suspect]
     Active Substance: NICARDIPINE HYDROCHLORIDE
     Indication: HYPERTENSION
     Dosage: UNK UNK, UNKNOWN
     Route: 064
  33. FUROSEMIDE. [Suspect]
     Active Substance: FUROSEMIDE
     Indication: HYPERTENSION
     Dosage: UNK UNK, UNKNOWN
     Route: 064
  34. AMOXICILLINE                       /00249603/ [Suspect]
     Active Substance: AMOXICILLIN SODIUM
     Indication: PRODUCT USED FOR UNKNOWN INDICATION
     Dosage: 3 G, DAILY
     Route: 064
     Dates: start: 20170804, end: 20170811
  35. INSULIN PORCINE [Suspect]
     Active Substance: INSULIN PORK\INSULIN PURIFIED PORK
     Indication: TYPE 2 DIABETES MELLITUS
     Dosage: UNK, UNKNOWN
     Route: 064
     Dates: start: 20160930, end: 20170224
  36. LOXEN                              /00639802/ [Suspect]
     Active Substance: NICARDIPINE HYDROCHLORIDE
     Indication: HYPERTENSION
     Dosage: UNK UNK, UNKNOWN
     Route: 064
  37. DIFFU-K [Suspect]
     Active Substance: POTASSIUM CHLORIDE
     Indication: HYPOKALAEMIA
     Dosage: UNK UNK, UNKNOWN
     Route: 064
     Dates: start: 20170804
  38. GABAPENTINE [Suspect]
     Active Substance: GABAPENTIN
     Indication: DIABETIC NEUROPATHY
     Dosage: 800 MG, UNKNOWN
     Route: 064
     Dates: start: 20170930
  39. FOLIC ACID. [Suspect]
     Active Substance: FOLIC ACID
     Indication: NORMOCHROMIC NORMOCYTIC ANAEMIA
     Dosage: 5 MG, DAILY
     Route: 064
     Dates: start: 20170313
  40. LAROXYL [Suspect]
     Active Substance: AMITRIPTYLINE HYDROCHLORIDE
     Indication: DIABETIC NEUROPATHY
     Dosage: 2 DF, DAILY
     Route: 064
     Dates: start: 20160930
  41. AMOXICILLINE                       /00249603/ [Suspect]
     Active Substance: AMOXICILLIN SODIUM
     Indication: PRODUCT USED FOR UNKNOWN INDICATION
     Dosage: 3 G, DAILY
     Route: 064
     Dates: start: 20170804, end: 20170811
  42. METHYLDOPA MSD [Suspect]
     Active Substance: METHYLDOPA
     Indication: HYPERTENSION
     Dosage: 1500 MG, DAILY
     Route: 064
     Dates: start: 20170720
  43. METFORMIN [Suspect]
     Active Substance: METFORMIN HYDROCHLORIDE
     Indication: TYPE 2 DIABETES MELLITUS
     Dosage: 1700 MG, DAILY
     Route: 064
     Dates: start: 20160930, end: 20170224
  44. RAMIPRIL. [Suspect]
     Active Substance: RAMIPRIL
     Indication: HYPERTENSION
     Dosage: 2.5 MG, DAILY
     Route: 064
     Dates: start: 20160930, end: 20170224
  45. LAROXYL [Suspect]
     Active Substance: AMITRIPTYLINE HYDROCHLORIDE
     Indication: DIABETIC NEUROPATHY
     Dosage: 2 DF, DAILY
     Route: 064
     Dates: start: 20160930
  46. LABETALOL [Suspect]
     Active Substance: LABETALOL\LABETALOL HYDROCHLORIDE
     Indication: HYPERTENSION
     Dosage: 80 MG, DAILY
     Route: 064
     Dates: start: 20170516
  47. ARIPIPRAZOLE. [Suspect]
     Active Substance: ARIPIPRAZOLE
     Indication: BIPOLAR I DISORDER
     Dosage: 10 MG, DAILY
     Route: 064
     Dates: start: 20160930, end: 20170224
  48. LEVEMIR [Suspect]
     Active Substance: INSULIN DETEMIR
     Indication: TYPE 2 DIABETES MELLITUS
     Dosage: 10 IU, DAILY
     Route: 064
     Dates: start: 20160930, end: 20170224

REACTIONS (4)
  - Low birth weight baby [Unknown]
  - Foetal disorder [Unknown]
  - Premature baby [Unknown]
  - Foetal exposure during pregnancy [Recovered/Resolved]

NARRATIVE: CASE EVENT DATE: 20170914
